FAERS Safety Report 4767571-7 (Version None)
Quarter: 2005Q3

REPORT INFORMATION
  Report Type: 
  Country: None (occurrence: None)
  Receive Date: 20050913
  Receipt Date: 20050907
  Transmission Date: 20060218
  Serious: Yes (Death, Hospitalization)
  Sender: FDA-Public Use
  Company Number: US-JNJFOC-20050901831

PATIENT
  Age: 51 Year
  Sex: Female

DRUGS (2)
  1. ACETAMINOPHEN/DIPHENHYDRAMINE [Suspect]
     Indication: SUICIDE ATTEMPT
     Route: 048
  2. NAPROXEN [Suspect]
     Indication: SUICIDE ATTEMPT

REACTIONS (8)
  - ANALGESIC DRUG LEVEL INCREASED [None]
  - COMA [None]
  - COMPLETED SUICIDE [None]
  - DIALYSIS [None]
  - HYPERBILIRUBINAEMIA [None]
  - HYPOTENSION [None]
  - METABOLIC ACIDOSIS [None]
  - TRANSAMINASES INCREASED [None]
